FAERS Safety Report 5211144-9 (Version None)
Quarter: 2006Q4

REPORT INFORMATION
  Report Type: 
  Country: None (occurrence: None)
  Receive Date: 20061130
  Receipt Date: 20060112
  Transmission Date: 20070319
  Serious: Yes (Disabling)
  Sender: FDA-Public Use
  Company Number: WAES 0601USA01548

PATIENT
  Age: 62 Year
  Sex: Female
  Weight: 79.8331 kg

DRUGS (6)
  1. FOSAMAX [Suspect]
     Dosage: 70 MG/WKY/PO
     Route: 048
     Dates: start: 20051208
  2. SYNTHROID [Concomitant]
  3. TOPROL-XL [Concomitant]
  4. ZOCOR [Concomitant]
  5. THERAPY UNSPECIFIED [Concomitant]
  6. LORATADINE [Concomitant]

REACTIONS (5)
  - ARTHRALGIA [None]
  - FEELING HOT [None]
  - FLUSHING [None]
  - PHARYNGOLARYNGEAL DISCOMFORT [None]
  - THROAT IRRITATION [None]
